FAERS Safety Report 18458186 (Version 1)
Quarter: 2020Q4

REPORT INFORMATION
  Report Type: Spontaneous
  Country: US (occurrence: US)
  Receive Date: 20201103
  Receipt Date: 20201103
  Transmission Date: 20210114
  Serious: No
  Sender: FDA-Public Use
  Company Number: NVSC2020US292308

PATIENT
  Sex: Female

DRUGS (1)
  1. VOTRIENT [Suspect]
     Active Substance: PAZOPANIB HYDROCHLORIDE
     Indication: NEOPLASM
     Dosage: 600 MG, QD
     Route: 048

REACTIONS (2)
  - Vertigo [Not Recovered/Not Resolved]
  - Dizziness [Not Recovered/Not Resolved]
